FAERS Safety Report 10152451 (Version 1)
Quarter: 2014Q2

REPORT INFORMATION
  Report Type: Spontaneous
  Country: US (occurrence: None)
  Receive Date: 20140502
  Receipt Date: 20140502
  Transmission Date: 20141212
  Serious: Yes (Disabling)
  Sender: FDA-Public Use
  Company Number: None

PATIENT
  Age: 57 Year
  Sex: Female
  Weight: 68.04 kg

DRUGS (2)
  1. CORTICOSTEROID [Suspect]
     Indication: PAIN IN EXTREMITY
  2. CORTICOSTEROID [Suspect]
     Indication: MUSCLE SPASMS

REACTIONS (2)
  - Arachnoiditis [None]
  - Nervous system disorder [None]
